FAERS Safety Report 5603793-0 (Version None)
Quarter: 2008Q1

REPORT INFORMATION
  Report Type: 
  Country: None (occurrence: None)
  Receive Date: 20080122
  Receipt Date: 20080121
  Transmission Date: 20080703
  Serious: Yes (Hospitalization)
  Sender: FDA-Public Use
  Company Number: TPA2007A02505

PATIENT
  Sex: Female

DRUGS (1)
  1. ROZEREM [Suspect]
     Indication: SLEEP DISORDER
     Dosage: QHS, 80 MILLIGRAM, PER ORAL
     Route: 048

REACTIONS (2)
  - BIPOLAR DISORDER [None]
  - INCORRECT DOSE ADMINISTERED [None]
